FAERS Safety Report 14663015 (Version 1)
Quarter: 2018Q1

REPORT INFORMATION
  Report Type: Spontaneous
  Country: US (occurrence: US)
  Receive Date: 20180321
  Receipt Date: 20180321
  Transmission Date: 20180509
  Serious: No
  Sender: FDA-Public Use
  Company Number: US-AMGEN-USASP2018036801

PATIENT
  Sex: Female

DRUGS (7)
  1. INDOMETHACIN. [Concomitant]
     Active Substance: INDOMETHACIN
     Indication: ARTHROPATHY
     Dosage: UNK
     Route: 065
  2. ENBREL [Suspect]
     Active Substance: ETANERCEPT
     Indication: ARTHROPATHY
     Dosage: UNK
     Route: 065
     Dates: start: 200601, end: 2010
  3. SULFASALAZINE. [Concomitant]
     Active Substance: SULFASALAZINE
     Indication: ARTHROPATHY
     Dosage: UNK
     Route: 065
  4. HUMIRA [Concomitant]
     Active Substance: ADALIMUMAB
     Indication: ARTHROPATHY
     Dosage: UNK
     Route: 065
     Dates: start: 201106, end: 201501
  5. XELJANZ [Concomitant]
     Active Substance: TOFACITINIB CITRATE
     Dosage: 10 MG, BID
     Route: 048
  6. REMICADE [Concomitant]
     Active Substance: INFLIXIMAB
     Indication: ARTHROPATHY
     Dosage: UNK
     Route: 065
     Dates: start: 2010, end: 201106
  7. IMURAN [Concomitant]
     Active Substance: AZATHIOPRINE
     Indication: ARTHROPATHY
     Dosage: UNK
     Route: 065
     Dates: start: 201204, end: 20170531

REACTIONS (1)
  - Ill-defined disorder [Unknown]
